FAERS Safety Report 6980637-6 (Version None)
Quarter: 2010Q3

REPORT INFORMATION
  Report Type: 
  Country: None (occurrence: None)
  Receive Date: 20100914
  Receipt Date: 20100908
  Transmission Date: 20110219
  Serious: Yes (Hospitalization)
  Sender: FDA-Public Use
  Company Number: JP-SHIRE-SPV1-2010-00405

PATIENT

DRUGS (14)
  1. LANTHANUM CARBONATE [Suspect]
     Indication: HYPERPHOSPHATAEMIA
     Dosage: 750 MG, TOTAL DAILY DOSE
     Route: 048
     Dates: start: 20100202
  2. LANTHANUM CARBONATE [Suspect]
     Dosage: 1500 MG, TOTAL DAILY DOSE (IMMEDIATELY AFTER MEALS)
     Route: 048
     Dates: start: 20090925, end: 20091210
  3. LANTHANUM CARBONATE [Suspect]
     Dosage: 750 MG, TOTAL DAILY DOSE (IMMEDIATELY AFTER MEALS)
     Route: 048
     Dates: start: 20090710, end: 20090925
  4. CELECOXIB [Suspect]
     Indication: PRODUCT USED FOR UNKNOWN INDICATION
     Dosage: 200 MG, TOTAL DAILY DOSE
     Route: 048
  5. CALCIUM CARBONATE [Concomitant]
     Indication: HYPERPHOSPHATAEMIA
     Dosage: 1500 MG, UNKNOWN
     Route: 048
     Dates: start: 20090710
  6. OXAROL [Concomitant]
     Indication: PRODUCT USED FOR UNKNOWN INDICATION
     Dosage: 2.5 UG, UNKNOWN
     Route: 042
     Dates: start: 20090710, end: 20100106
  7. OXAROL [Concomitant]
     Dosage: 5 UG, UNKNOWN
     Route: 042
     Dates: start: 20100108
  8. CINACALCET HYDROCHLORIDE [Concomitant]
     Indication: HYPERPARATHYROIDISM SECONDARY
     Dosage: 50 MG, UNKNOWN
     Route: 048
     Dates: start: 20090710
  9. ZYLORIC                            /00003301/ [Concomitant]
     Indication: PRODUCT USED FOR UNKNOWN INDICATION
     Dosage: 100 MG, UNKNOWN
     Route: 048
  10. PLETAL [Concomitant]
     Indication: PRODUCT USED FOR UNKNOWN INDICATION
     Dosage: 200 MG, UNKNOWN
     Route: 048
  11. NEOMALLERMIN TR [Concomitant]
     Indication: PRODUCT USED FOR UNKNOWN INDICATION
     Dosage: 1 DF, UNKNOWN
     Route: 048
  12. NORVASC [Concomitant]
     Indication: PRODUCT USED FOR UNKNOWN INDICATION
     Dosage: 2.5 MG, UNKNOWN
     Route: 048
  13. EPOGIN [Concomitant]
     Indication: PRODUCT USED FOR UNKNOWN INDICATION
     Dosage: 3000 IU, UNKNOWN
     Route: 065
     Dates: start: 20100106
  14. RENAGEL                            /01459901/ [Concomitant]
     Indication: HYPERPHOSPHATAEMIA
     Dosage: 6000 MG, UNKNOWN
     Route: 048

REACTIONS (2)
  - GASTRIC ULCER HAEMORRHAGE [None]
  - UPPER RESPIRATORY TRACT INFLAMMATION [None]
